FAERS Safety Report 17072567 (Version 1)
Quarter: 2019Q4

REPORT INFORMATION
  Report Type: Spontaneous
  Country: US (occurrence: US)
  Receive Date: 20191125
  Receipt Date: 20191125
  Transmission Date: 20200122
  Serious: No
  Sender: FDA-Public Use
  Company Number: US-BAYER-2019-211884

PATIENT
  Age: 27 Year
  Sex: Female
  Weight: 97 kg

DRUGS (1)
  1. LOTRIMIN ULTRA [Suspect]
     Active Substance: BUTENAFINE HYDROCHLORIDE
     Indication: THERAPEUTIC SKIN CARE TOPICAL
     Dosage: 1 DF
     Route: 061
     Dates: start: 20191106, end: 20191108

REACTIONS (2)
  - Product administered at inappropriate site [None]
  - Fungal infection [Recovered/Resolved]

NARRATIVE: CASE EVENT DATE: 20191106
